FAERS Safety Report 15043922 (Version 2)
Quarter: 2018Q3

REPORT INFORMATION
  Report Type: Spontaneous
  Country: US (occurrence: US)
  Receive Date: 20180621
  Receipt Date: 20180703
  Transmission Date: 20181010
  Serious: Yes (Other)
  Sender: FDA-Public Use
  Company Number: US-ALLERGAN-1831667US

PATIENT
  Age: 39 Year
  Sex: Female

DRUGS (1)
  1. LO LOESTRIN FE [Suspect]
     Active Substance: ETHINYL ESTRADIOL\NORETHINDRONE ACETATE
     Indication: OVARIAN CYST
     Dosage: 1 DF, QD
     Route: 048
     Dates: start: 201803, end: 20180527

REACTIONS (4)
  - Malaise [Recovered/Resolved]
  - Off label use [Unknown]
  - Coeliac disease [Recovered/Resolved]
  - Ovarian cyst ruptured [Unknown]
